FAERS Safety Report 4923229-2 (Version None)
Quarter: 2006Q1

REPORT INFORMATION
  Report Type: 
  Country: None (occurrence: None)
  Receive Date: 20060127
  Receipt Date: 20051205
  Transmission Date: 20060701
  Serious: Yes (Other)
  Sender: FDA-Public Use
  Company Number: 2005164247

PATIENT
  Age: 84 Year
  Sex: Male

DRUGS (4)
  1. LYRICA [Suspect]
     Indication: HERPES ZOSTER
     Dosage: 150 MG (50 MG 3 IN 1 D)
  2. LEVOTHYROXINE SODIUM [Concomitant]
  3. SPIRIVA [Concomitant]
  4. NEXIUM [Concomitant]

REACTIONS (3)
  - DRUG INEFFECTIVE [None]
  - FEELING ABNORMAL [None]
  - VISION BLURRED [None]
